FAERS Safety Report 7792991-6 (Version None)
Quarter: 2011Q4

REPORT INFORMATION
  Report Type: 
  Country: None (occurrence: None)
  Receive Date: 20111003
  Receipt Date: 20110929
  Transmission Date: 20120403
  Serious: Yes (Life-Threatening, Hospitalization, Other)
  Sender: FDA-Public Use
  Company Number: PHHY2011JP08809

PATIENT
  Sex: Female

DRUGS (54)
  1. CLOZARIL [Suspect]
     Dosage: 125 MG
     Route: 048
     Dates: start: 20101212, end: 20101214
  2. CLOZARIL [Suspect]
     Dosage: 225 MG
     Route: 048
     Dates: start: 20101222, end: 20101223
  3. HIRNAMIN [Concomitant]
     Dosage: 150 MG, UNK
     Route: 048
     Dates: start: 20101201
  4. HIRNAMIN [Concomitant]
     Dosage: 50 MG, UNK
     Route: 048
  5. RISPERDAL [Concomitant]
     Dosage: 12 MG, UNK
     Route: 048
     Dates: start: 20101201
  6. CEFTRIAXONE SODIUM [Concomitant]
     Dosage: 2000 MG, UNK
     Dates: start: 20110609, end: 20110609
  7. CLOZARIL [Suspect]
     Dosage: 300 MG
     Route: 048
     Dates: start: 20101226, end: 20101228
  8. CLOZARIL [Suspect]
     Dosage: 450 MG
     Route: 048
     Dates: start: 20110109, end: 20110111
  9. CLOZARIL [Suspect]
     Dosage: 450 MG
     Route: 048
     Dates: start: 20110514, end: 20110607
  10. VALPROATE SODIUM [Concomitant]
     Dosage: 400 MG, DAILY
  11. RISPERDAL [Concomitant]
     Dosage: 10 MG, UNK
     Route: 048
  12. RISPERDAL [Concomitant]
     Dosage: 3 MG, UNK
     Route: 048
  13. AKINETON [Concomitant]
     Dosage: 5 MG, UNK
     Route: 048
  14. AKINETON [Concomitant]
     Dosage: 2 MG, UNK
     Route: 048
     Dates: end: 20110609
  15. MAGMITT KENEI [Concomitant]
     Dosage: 3000 MG, UNK
     Route: 048
  16. MAGMITT KENEI [Concomitant]
     Dosage: 3000 MG, UNK
     Route: 048
  17. TASMOLIN [Concomitant]
     Dosage: 3 MG, UNK
     Dates: start: 20110302, end: 20110601
  18. CLOZARIL [Suspect]
     Dosage: 150 MG
     Route: 048
     Dates: start: 20101215, end: 20101217
  19. CLOZARIL [Suspect]
     Dosage: 175 MG
     Route: 048
     Dates: start: 20101218, end: 20101220
  20. CLOZARIL [Suspect]
     Dosage: 500 MG
     Route: 048
     Dates: start: 20110115, end: 20110118
  21. CLOZARIL [Suspect]
     Dosage: 500 MG
     Route: 048
     Dates: start: 20110203, end: 20110510
  22. HIRNAMIN [Concomitant]
     Dosage: 125 MG, UNK
     Route: 048
  23. MAGMITT KENEI [Concomitant]
     Dosage: 3000 MG, UNK
     Route: 048
     Dates: end: 20110602
  24. TASMOLIN [Concomitant]
     Dosage: 2.5 MG, UNK
     Route: 048
  25. CLOZARIL [Suspect]
     Dosage: 25 MG
     Route: 048
     Dates: start: 20101202, end: 20101204
  26. CLOZARIL [Suspect]
     Dosage: 50 MG
     Route: 048
     Dates: start: 20101205, end: 20101207
  27. CLOZARIL [Suspect]
     Dosage: 250 MG
     Route: 048
     Dates: start: 20101224, end: 20101225
  28. RISPERDAL [Concomitant]
     Dosage: 2 MG, UNK
     Route: 048
     Dates: end: 20101228
  29. AKINETON [Concomitant]
     Dosage: 6 MG, UNK
     Route: 048
     Dates: start: 20101201
  30. LORAZEPAM [Concomitant]
     Indication: SCHIZOPHRENIA
     Route: 048
     Dates: start: 20101229, end: 20110301
  31. CLOZARIL [Suspect]
     Dosage: 100 MG
     Route: 048
     Dates: start: 20101210, end: 20101211
  32. CLOZARIL [Suspect]
     Dosage: 200 MG
     Route: 048
     Dates: start: 20101221, end: 20101221
  33. CLOZARIL [Suspect]
     Dosage: 375 MG
     Route: 048
     Dates: start: 20110101, end: 20110104
  34. CLOZARIL [Suspect]
     Dosage: 425 MG
     Route: 048
     Dates: start: 20110107, end: 20110108
  35. CLOZARIL [Suspect]
     Dosage: 475 MG
     Route: 048
     Dates: start: 20110112, end: 20110114
  36. HIRNAMIN [Concomitant]
     Dosage: 25 MG, UNK
     Route: 048
     Dates: end: 20101228
  37. AKINETON [Concomitant]
     Dosage: 4 MG, UNK
     Route: 048
  38. CLOZARIL [Suspect]
     Dosage: 600 MG
     Route: 048
     Dates: start: 20110126, end: 20110202
  39. CLOZARIL [Suspect]
     Dosage: 475 MG
     Route: 048
     Dates: start: 20110511, end: 20110513
  40. CLOZARIL [Suspect]
     Dosage: 500 MG
     Route: 048
     Dates: start: 20110608, end: 20110609
  41. RISPERDAL [Concomitant]
     Dosage: 4 MG, UNK
     Route: 048
  42. LAXOBERON [Concomitant]
     Route: 048
     Dates: start: 20101201, end: 20110301
  43. TASMOLIN [Concomitant]
     Dosage: 2 MG, UNK
     Route: 048
     Dates: end: 20110601
  44. CLOZARIL [Suspect]
     Indication: SCHIZOPHRENIA
     Dosage: 12.5 MG
     Route: 048
     Dates: start: 20101201, end: 20101201
  45. CLOZARIL [Suspect]
     Dosage: 75 MG
     Route: 048
     Dates: start: 20101208, end: 20101209
  46. CLOZARIL [Suspect]
     Dosage: 350 MG
     Route: 048
     Dates: start: 20101229, end: 20101231
  47. CLOZARIL [Suspect]
     Dosage: 400 MG
     Route: 048
     Dates: start: 20110105, end: 20110106
  48. HIRNAMIN [Concomitant]
     Dosage: 100 MG, UNK
     Route: 048
  49. SLOWHEIM [Concomitant]
     Indication: SCHIZOPHRENIA
     Dosage: 7.5 MG, UNK
     Dates: start: 20110302
  50. PANTOL [Concomitant]
     Dosage: 100 MG, UNK
     Dates: start: 20110609, end: 20110609
  51. CLOZARIL [Suspect]
     Dosage: 550 MG
     Route: 048
     Dates: start: 20110119, end: 20110125
  52. RISPERDAL [Concomitant]
     Dosage: 6 MG, UNK
  53. AMOBAN [Concomitant]
     Indication: SCHIZOPHRENIA
     Dosage: 7.5 MG, UNK
     Route: 048
     Dates: start: 20101201
  54. SLOWHEIM [Concomitant]
     Dosage: 7.5 MG, UNK
     Route: 048
     Dates: end: 20110609

REACTIONS (13)
  - GRAND MAL CONVULSION [None]
  - INFECTIOUS PERITONITIS [None]
  - C-REACTIVE PROTEIN INCREASED [None]
  - ORTHOSTATIC HYPERTENSION [None]
  - DIZZINESS [None]
  - WHITE BLOOD CELL COUNT DECREASED [None]
  - NEUTROPENIA [None]
  - APPENDICITIS [None]
  - NEUTROPHIL COUNT INCREASED [None]
  - TACHYCARDIA [None]
  - LEUKOPENIA [None]
  - GASTROINTESTINAL PERFORATION [None]
  - FALL [None]
